FAERS Safety Report 5293303-2 (Version None)
Quarter: 2007Q1

REPORT INFORMATION
  Report Type: 
  Country: None (occurrence: None)
  Receive Date: 20070116
  Receipt Date: 20061023
  Transmission Date: 20070707
  Serious: Yes (Other)
  Sender: FDA-Public Use
  Company Number: HQWYE903629SEP03

PATIENT
  Age: 56 Year
  Sex: Female

DRUGS (1)
  1. PREMPRO [Suspect]
     Dosage: UNSPECIFIED DOSAGE FOR A NUMBER OF YEARS, ORAL
     Route: 048
     Dates: start: 19990623, end: 20000804

REACTIONS (1)
  - CEREBROVASCULAR ACCIDENT [None]
